FAERS Safety Report 7369896-8 (Version None)
Quarter: 2011Q1

REPORT INFORMATION
  Report Type: 
  Country: None (occurrence: None)
  Receive Date: 20110323
  Receipt Date: 20100921
  Transmission Date: 20110831
  Serious: Yes (Hospitalization)
  Sender: FDA-Public Use
  Company Number: US-BAYER-201029563NA

PATIENT
  Sex: Female
  Weight: 61.224 kg

DRUGS (14)
  1. XANAX [Concomitant]
     Dosage: UNK UNK, TID
     Dates: start: 20080101
  2. TRAMADOL HYDROCHLORIDE [Concomitant]
     Dosage: 50 MG, UNK
     Dates: start: 20090729
  3. PHENERGAN [Concomitant]
  4. ADVIL LIQUI-GELS [Concomitant]
  5. TRI-SPRINTEC [Concomitant]
     Dosage: UNK
     Dates: start: 20090713
  6. YASMIN [Suspect]
     Indication: PRODUCT USED FOR UNKNOWN INDICATION
     Route: 048
  7. UNCODEABLE ^UNCLASSIFIABLE^ [Concomitant]
     Dosage: UNK
     Dates: start: 20090801
  8. ALPRAZOLAM [Concomitant]
     Dosage: 0.5 MG, UNK
     Dates: start: 20090501
  9. IBUPROFEN [Concomitant]
  10. ALEVE [Concomitant]
  11. LORTAB [Concomitant]
     Indication: PAIN
     Dosage: UNK UNK, QID
     Dates: start: 20090501
  12. PROGESTERONE [Concomitant]
     Dosage: UNK UNK, CONT
     Dates: start: 20090221
  13. YAZ [Suspect]
     Indication: PRODUCT USED FOR UNKNOWN INDICATION
     Dosage: UNK
     Route: 048
     Dates: start: 20080101, end: 20090801
  14. UNCODEABLE ^UNCLASSIFIABLE^ [Concomitant]
     Dosage: UNK
     Dates: start: 20090501

REACTIONS (9)
  - CHOLELITHIASIS [None]
  - CHEST PAIN [None]
  - GALLBLADDER NON-FUNCTIONING [None]
  - PAIN [None]
  - HEADACHE [None]
  - DIZZINESS [None]
  - PREGNANCY [None]
  - DYSPNOEA [None]
  - URINARY TRACT DISORDER [None]
